FAERS Safety Report 10478298 (Version 1)
Quarter: 2014Q3

REPORT INFORMATION
  Report Type: Spontaneous
  Country: US (occurrence: None)
  Receive Date: 20140925
  Receipt Date: 20140925
  Transmission Date: 20150326
  Serious: No
  Sender: FDA-Public Use
  Company Number: None

PATIENT
  Age: 21 Year
  Sex: Female
  Weight: 84.37 kg

DRUGS (2)
  1. INVEGA [Suspect]
     Active Substance: PALIPERIDONE
     Indication: PRODUCT USED FOR UNKNOWN INDICATION
     Dosage: HIGHEST, ONCE DAILY, INTO THE MUSCLE
     Route: 030
     Dates: start: 20110603, end: 20110703
  2. INVEGA [Suspect]
     Active Substance: PALIPERIDONE
     Indication: SCHIZOPHRENIA
     Dosage: HIGHEST, ONCE DAILY, INTO THE MUSCLE
     Route: 030
     Dates: start: 20110603, end: 20110703

REACTIONS (6)
  - Delusion [None]
  - Condition aggravated [None]
  - Aggression [None]
  - Weight increased [None]
  - Mental status changes [None]
  - Illiteracy [None]

NARRATIVE: CASE EVENT DATE: 20110603
